FAERS Safety Report 23573980 (Version 1)
Quarter: 2024Q1

REPORT INFORMATION
  Report Type: Spontaneous
  Country: BG (occurrence: None)
  Receive Date: 20240228
  Receipt Date: 20240228
  Transmission Date: 20240410
  Serious: Yes (Other)
  Sender: FDA-Public Use
  Company Number: 2024A045317

PATIENT
  Age: 19366 Day
  Sex: Male

DRUGS (1)
  1. FASENRA [Suspect]
     Active Substance: BENRALIZUMAB
     Indication: Asthma
     Dosage: 30.0MG AS REQUIRED
     Route: 058

REACTIONS (1)
  - Eosinophil count abnormal [Unknown]

NARRATIVE: CASE EVENT DATE: 20240213
